FAERS Safety Report 7934293-0 (Version None)
Quarter: 2011Q4

REPORT INFORMATION
  Report Type: 
  Country: None (occurrence: None)
  Receive Date: 20111122
  Receipt Date: 20110131
  Transmission Date: 20120403
  Serious: No
  Sender: FDA-Public Use
  Company Number: US-BAYER-2011-112135

PATIENT
  Age: 58 Year
  Weight: 72.562 kg

DRUGS (1)
  1. ALEVE (CAPLET) [Suspect]
     Indication: ANALGESIC THERAPY
     Dosage: 2 U, UNK
     Route: 048
     Dates: start: 20110131, end: 20110131

REACTIONS (1)
  - PAIN [None]
